FAERS Safety Report 11343218 (Version 3)
Quarter: 2015Q3

REPORT INFORMATION
  Report Type: Report from Study
  Country: US (occurrence: US)
  Receive Date: 20150806
  Receipt Date: 20150922
  Transmission Date: 20151125
  Serious: Yes (Hospitalization)
  Sender: FDA-Public Use
  Company Number: US-ASTRAZENECA-2015SE70269

PATIENT
  Sex: Female

DRUGS (1)
  1. BRILINTA [Suspect]
     Active Substance: TICAGRELOR
     Indication: ACUTE CORONARY SYNDROME
     Route: 048

REACTIONS (18)
  - Malaise [Unknown]
  - Laceration [Unknown]
  - Heart rate decreased [Unknown]
  - Contusion [Unknown]
  - Skin sensitisation [Unknown]
  - Cardiovascular disorder [Unknown]
  - Cardiac disorder [Unknown]
  - Blood pressure fluctuation [Unknown]
  - Fatigue [Unknown]
  - Vein disorder [Unknown]
  - Arteriosclerosis [Unknown]
  - Diabetes mellitus [Unknown]
  - Blood glucose fluctuation [Unknown]
  - Blood pressure decreased [Unknown]
  - Skin atrophy [Unknown]
  - Migraine [Unknown]
  - Abdominal pain upper [Unknown]
  - Asthenia [Unknown]
